FAERS Safety Report 18643531 (Version 1)
Quarter: 2020Q4

REPORT INFORMATION
  Report Type: Spontaneous
  Country: US (occurrence: US)
  Receive Date: 20201221
  Receipt Date: 20201221
  Transmission Date: 20210114
  Serious: Yes (Other)
  Sender: FDA-Public Use
  Company Number: NVSC2020US338253

PATIENT
  Age: 15 Year
  Sex: Male

DRUGS (17)
  1. LENALIDOMIDE [Suspect]
     Active Substance: LENALIDOMIDE
     Indication: EPIDERMOLYSIS BULLOSA
     Dosage: UNK
     Route: 062
  2. MELATONIN [Suspect]
     Active Substance: MELATONIN
     Indication: EPIDERMOLYSIS BULLOSA
     Dosage: UNK
     Route: 062
  3. CLONIDINE. [Suspect]
     Active Substance: CLONIDINE
     Indication: EPIDERMOLYSIS BULLOSA
     Dosage: UNK
     Route: 062
  4. MYCOPHENOLATE MOFETIL. [Suspect]
     Active Substance: MYCOPHENOLATE MOFETIL
     Indication: EPIDERMOLYSIS BULLOSA
     Dosage: UNK
     Route: 062
  5. MUPIROCIN. [Suspect]
     Active Substance: MUPIROCIN
     Indication: EPIDERMOLYSIS BULLOSA
     Dosage: UNK
     Route: 061
  6. GABAPENTIN. [Suspect]
     Active Substance: GABAPENTIN
     Indication: EPIDERMOLYSIS BULLOSA
     Dosage: UNK
     Route: 062
  7. CANNABIS [Suspect]
     Active Substance: CANNABIS SATIVA SUBSP. INDICA TOP
     Indication: EPIDERMOLYSIS BULLOSA
     Dosage: UNK
     Route: 061
  8. THALIDOMIDE [Suspect]
     Active Substance: THALIDOMIDE
     Indication: EPIDERMOLYSIS BULLOSA
     Dosage: UNK
     Route: 062
  9. N-ACETILCISTEINA [Suspect]
     Active Substance: ACETYLCYSTEINE
     Indication: EPIDERMOLYSIS BULLOSA
     Dosage: UNK
     Route: 062
  10. DOXEPIN [Suspect]
     Active Substance: DOXEPIN
     Indication: EPIDERMOLYSIS BULLOSA
     Dosage: UNK
     Route: 061
  11. OMALIZUMAB. [Suspect]
     Active Substance: OMALIZUMAB
     Indication: EPIDERMOLYSIS BULLOSA
     Dosage: UNK
     Route: 062
  12. TOFACITINIB [Suspect]
     Active Substance: TOFACITINIB
     Indication: EPIDERMOLYSIS BULLOSA
     Dosage: UNK
     Route: 062
  13. PREGABALIN. [Suspect]
     Active Substance: PREGABALIN
     Indication: EPIDERMOLYSIS BULLOSA
     Dosage: UNK
     Route: 062
  14. NALTREXONE [Suspect]
     Active Substance: NALTREXONE
     Indication: EPIDERMOLYSIS BULLOSA
     Dosage: UNK
     Route: 062
  15. AMITRIPTYLINE [Suspect]
     Active Substance: AMITRIPTYLINE
     Indication: EPIDERMOLYSIS BULLOSA
     Dosage: UNK
     Route: 061
  16. CYCLOSPORINE. [Suspect]
     Active Substance: CYCLOSPORINE
     Indication: EPIDERMOLYSIS BULLOSA
     Dosage: UNK
     Route: 062
  17. MARINOL [Suspect]
     Active Substance: DRONABINOL
     Indication: EPIDERMOLYSIS BULLOSA
     Dosage: UNK
     Route: 062

REACTIONS (2)
  - Epidermolysis bullosa [Recovering/Resolving]
  - Product use in unapproved indication [Unknown]
